FAERS Safety Report 6631629-8 (Version None)
Quarter: 2010Q1

REPORT INFORMATION
  Report Type: 
  Country: None (occurrence: None)
  Receive Date: 20100312
  Receipt Date: 20100301
  Transmission Date: 20100710
  Serious: Yes (Other)
  Sender: FDA-Public Use
  Company Number: DE-PFIZER INC-2010026367

PATIENT
  Age: 69 Year
  Sex: Male
  Weight: 74 kg

DRUGS (5)
  1. PEGVISOMANT [Suspect]
     Indication: ACROMEGALY
     Dosage: 20 MG, 1X/DAY
     Route: 058
     Dates: start: 20071206
  2. L-THYROXIN [Concomitant]
     Dosage: UNK
  3. RAMIPRIL [Concomitant]
     Dosage: UNK
  4. SIMVASTATIN [Concomitant]
     Dosage: UNK
  5. TESTOSTERONE [Concomitant]
     Dosage: UNK

REACTIONS (2)
  - CONDITION AGGRAVATED [None]
  - PITUITARY TUMOUR BENIGN [None]
